FAERS Safety Report 9624286 (Version 3)
Quarter: 2013Q4

REPORT INFORMATION
  Report Type: Report from Study
  Country: DE (occurrence: DE)
  Receive Date: 20131015
  Receipt Date: 20131115
  Transmission Date: 20140711
  Serious: Yes (Hospitalization)
  Sender: FDA-Public Use
  Company Number: DE-ABBVIE-13P-062-1134956-00

PATIENT
  Age: 71 Year
  Sex: Male

DRUGS (1)
  1. HUMIRA [Suspect]
     Indication: CROHN^S DISEASE
     Route: 058
     Dates: start: 20080625, end: 20130814

REACTIONS (5)
  - Weight decreased [Not Recovered/Not Resolved]
  - Decreased appetite [Not Recovered/Not Resolved]
  - Renal failure [Not Recovered/Not Resolved]
  - IgA nephropathy [Not Recovered/Not Resolved]
  - Glomerulonephritis [Not Recovered/Not Resolved]
